FAERS Safety Report 9048529 (Version 1)
Quarter: 2013Q1

REPORT INFORMATION
  Report Type: Spontaneous
  Country: US (occurrence: None)
  Receive Date: 20130116
  Receipt Date: 20130116
  Transmission Date: 20140127
  Serious: Yes (Death, Hospitalization)
  Sender: FDA-Public Use
  Company Number: MC2013000008

PATIENT
  Age: 77 Year
  Sex: Female
  Weight: 147.4 kg

DRUGS (5)
  1. ANGIOMAX [Suspect]
     Indication: PERCUTANEOUS CORONARY INTERVENTION
     Route: 040
     Dates: start: 20130102, end: 20130102
  2. COUMADIN (WARFARIN SODIUM) [Concomitant]
  3. VITAMIN K (PHYTOMENADIONE) [Concomitant]
  4. PLAVIX (CLOPIDOGREL SULFATE) [Concomitant]
  5. ASA (ASA) [Concomitant]

REACTIONS (3)
  - Cerebrovascular accident [None]
  - Cerebral haemorrhage [None]
  - Subarachnoid haemorrhage [None]
